FAERS Safety Report 4303372-1 (Version None)
Quarter: 2004Q1

REPORT INFORMATION
  Report Type: 
  Country: None (occurrence: None)
  Receive Date: 20040223
  Receipt Date: 20040210
  Transmission Date: 20041129
  Serious: Yes (Hospitalization)
  Sender: FDA-Public Use
  Company Number: 04P-056-0249040-00

PATIENT
  Age: 74 Year
  Sex: Male
  Weight: 70 kg

DRUGS (30)
  1. ULTANE [Suspect]
     Indication: ANAESTHESIA
     Dosage: 1 OTHER, 1 IN1 D, INHALATION
     Dates: start: 20040113, end: 20040113
  2. KETAMINE HCL [Concomitant]
  3. PROPOFOL [Concomitant]
  4. SUFENTANIL CITRATE [Concomitant]
  5. CISATRACURIUM BESILATE [Concomitant]
  6. SODIUM CHLORIDE INJ [Concomitant]
  7. CEFAZOLIN [Concomitant]
  8. SUPPRESSYL [Concomitant]
  9. FUROSEMIDE [Concomitant]
  10. LIDOCAINE HYDROCHLORIDE [Concomitant]
  11. EPHEDRINE [Concomitant]
  12. PERFALGAN [Concomitant]
  13. NEFOPAM HYDROCHLORIDE [Concomitant]
  14. APROTININ [Concomitant]
  15. HETASTARCH 6% IN 0.9% SODIUM CHLORIDE IN PLASTIC CONTAINER [Concomitant]
  16. GALENIC /GLUCOSE/SODIUM CL/POTASSIUM CL [Concomitant]
  17. MAGNESIUM [Concomitant]
  18. CALCIUM CHLORIDE [Concomitant]
  19. RANITIDINE [Concomitant]
  20. POTASSIUM CHLORIDE [Concomitant]
  21. EPINEPHRINE [Concomitant]
  22. NEOZYNEPARINE [Concomitant]
  23. ALBUMIN (HUMAN) [Concomitant]
  24. MIDAZOLAM HYDROCHLORIDE [Concomitant]
  25. INSULIN [Concomitant]
  26. GLUCOSE [Concomitant]
  27. PLASMION [Concomitant]
  28. GLYCERYL TRINITRATE [Concomitant]
  29. FUROSEMIDE [Concomitant]
  30. ASPIRIN [Concomitant]

REACTIONS (4)
  - CARDIAC PROCEDURE COMPLICATION [None]
  - IATROGENIC INJURY [None]
  - POST PROCEDURAL HAEMORRHAGE [None]
  - TROPONIN INCREASED [None]
